FAERS Safety Report 5214430-1 (Version None)
Quarter: 2007Q1

REPORT INFORMATION
  Report Type: 
  Country: None (occurrence: None)
  Receive Date: 20070116
  Receipt Date: 20070110
  Transmission Date: 20070707
  Serious: Yes (Death)
  Sender: FDA-Public Use
  Company Number: 230218K07USA

PATIENT
  Age: 74 Year
  Sex: Female

DRUGS (6)
  1. REBIF [Suspect]
     Indication: MULTIPLE SCLEROSIS
     Dosage: 44 MCG, 3 IN 1 WEEKS, SUBCUTANEOUS
     Route: 058
     Dates: start: 20020110, end: 20030530
  2. COPAXONE [Suspect]
  3. PREMARIN [Concomitant]
  4. FOSAMAX [Concomitant]
  5. NEURONTIN [Concomitant]
  6. CALCIUM (CALCIUM-SANDOZ) [Concomitant]

REACTIONS (1)
  - ACUTE MYELOID LEUKAEMIA [None]
